FAERS Safety Report 4947539-8 (Version None)
Quarter: 2006Q1

REPORT INFORMATION
  Report Type: 
  Country: None (occurrence: None)
  Receive Date: 20060320
  Receipt Date: 20060208
  Transmission Date: 20060701
  Serious: Yes (Hospitalization, Other)
  Sender: FDA-Public Use
  Company Number: PHRM2006FR00751

PATIENT
  Age: 57 Year
  Sex: Female

DRUGS (2)
  1. SOTALOL HCL [Concomitant]
  2. AREDIA [Suspect]
     Indication: MULTIPLE MYELOMA
     Dosage: 1 DF, QMO
     Route: 042
     Dates: start: 20040701

REACTIONS (2)
  - BRONCHITIS [None]
  - PNEUMONIA [None]
